FAERS Safety Report 19480339 (Version 1)
Quarter: 2021Q3

REPORT INFORMATION
  Report Type: Spontaneous
  Country: US (occurrence: US)
  Receive Date: 20210701
  Receipt Date: 20210701
  Transmission Date: 20211014
  Serious: No
  Sender: FDA-Public Use
  Company Number: US-GLAXOSMITHKLINE-US2021139710

PATIENT
  Age: 67 Year
  Sex: Female

DRUGS (2)
  1. TRELEGY ELLIPTA [Suspect]
     Active Substance: FLUTICASONE FUROATE\UMECLIDINIUM BROMIDE\VILANTEROL TRIFENATATE
     Indication: PNEUMONITIS
     Dosage: UNK, ADM 4 DOSES, 100/62.5/25MCG
     Dates: start: 20210627
  2. SYMBICORT [Concomitant]
     Active Substance: BUDESONIDE\FORMOTEROL FUMARATE DIHYDRATE
     Indication: PRODUCT USED FOR UNKNOWN INDICATION
     Dosage: UNK

REACTIONS (4)
  - Oxygen saturation decreased [Recovered/Resolved]
  - Wrong technique in device usage process [Unknown]
  - Panic reaction [Unknown]
  - Overdose [Unknown]

NARRATIVE: CASE EVENT DATE: 20210627
